FAERS Safety Report 23109971 (Version 1)
Quarter: 2023Q4

REPORT INFORMATION
  Report Type: Spontaneous
  Country: US (occurrence: None)
  Receive Date: 20231024
  Receipt Date: 20231024
  Transmission Date: 20240110
  Serious: Yes (Hospitalization)
  Sender: FDA-Public Use
  Company Number: None

PATIENT
  Sex: Male
  Weight: 137 kg

DRUGS (4)
  1. INSULIN HUMAN [Suspect]
     Active Substance: INSULIN HUMAN
     Dosage: OTHER STRENGTH : 100U/ML;?FREQUENCY : 3 TIMES A DAY;?
     Route: 058
     Dates: start: 20220201, end: 20220211
  2. ROPINIROLE [Suspect]
     Active Substance: ROPINIROLE
     Dates: end: 20220211
  3. WARFARIN [Suspect]
     Active Substance: WARFARIN
  4. ATENOLOL [Suspect]
     Active Substance: ATENOLOL

REACTIONS (10)
  - Dizziness [None]
  - Hypoglycaemia [None]
  - Syncope [None]
  - Fall [None]
  - Musculoskeletal chest pain [None]
  - Hyperhidrosis [None]
  - Dizziness [None]
  - Tunnel vision [None]
  - Device power source issue [None]
  - Product monitoring error [None]

NARRATIVE: CASE EVENT DATE: 20220209
